FAERS Safety Report 15027715 (Version 1)
Quarter: 2018Q2

REPORT INFORMATION
  Report Type: Spontaneous
  Country: US (occurrence: US)
  Receive Date: 20180619
  Receipt Date: 20180619
  Transmission Date: 20180711
  Serious: No
  Sender: FDA-Public Use
  Company Number: US-PFIZER INC-2018245611

PATIENT
  Age: 21 Year
  Sex: Female

DRUGS (12)
  1. CRIZOTINIB [Suspect]
     Active Substance: CRIZOTINIB
     Indication: LUNG CANCER METASTATIC
     Dosage: UNK
  2. REGLAN [Concomitant]
     Active Substance: METOCLOPRAMIDE HYDROCHLORIDE
     Dosage: UNK
  3. ZOFRAN [Concomitant]
     Active Substance: ONDANSETRON HYDROCHLORIDE
     Dosage: UNK
  4. LEVOTHYROXINE. [Concomitant]
     Active Substance: LEVOTHYROXINE
     Dosage: UNK
  5. COMPAZINE [Concomitant]
     Active Substance: PROCHLORPERAZINE MALEATE
     Dosage: UNK
  6. DEXILANT [Concomitant]
     Active Substance: DEXLANSOPRAZOLE
     Dosage: UNK
  7. DEXAMETHASONE. [Concomitant]
     Active Substance: DEXAMETHASONE
     Dosage: UNK
  8. PRAVASTATIN. [Concomitant]
     Active Substance: PRAVASTATIN
     Dosage: UNK
  9. RANITIDINE. [Concomitant]
     Active Substance: RANITIDINE
     Dosage: UNK
  10. CARBOPLATIN. [Suspect]
     Active Substance: CARBOPLATIN
     Indication: LUNG CANCER METASTATIC
     Dosage: UNK
  11. LORLATINIB [Concomitant]
     Active Substance: LORLATINIB
     Dosage: UNK
  12. CARAFATE [Suspect]
     Active Substance: SUCRALFATE
     Dosage: UNK

REACTIONS (1)
  - Neoplasm progression [Unknown]
